FAERS Safety Report 7672887-0 (Version None)
Quarter: 2011Q3

REPORT INFORMATION
  Report Type: 
  Country: None (occurrence: None)
  Receive Date: 20110809
  Receipt Date: 20110725
  Transmission Date: 20111222
  Serious: Yes (Other)
  Sender: FDA-Public Use
  Company Number: PHHY2011GR67697

PATIENT
  Age: 35 Year
  Sex: Female

DRUGS (7)
  1. ESTRADIOL [Suspect]
     Indication: HORMONE REPLACEMENT THERAPY
     Dosage: 4 MG, UNK
  2. PROGESTERONE [Concomitant]
     Dosage: 800 MG, UNK
  3. FOLIC ACID [Concomitant]
     Dosage: UNK UKN, UNK
  4. SALICYLIC ACID [Concomitant]
     Dosage: UNK UKN, UNK
  5. HEPARIN [Concomitant]
     Dosage: UNK UKN, UNK
  6. PROGESTERONE [Concomitant]
     Dosage: 400 MG, DAILY
  7. IRON SUPPLEMENTS [Concomitant]
     Dosage: UNK UKN, UNK

REACTIONS (13)
  - UTERINE HAEMORRHAGE [None]
  - BLOOD PRESSURE DIASTOLIC INCREASED [None]
  - GESTATIONAL TROPHOBLASTIC DETACHMENT [None]
  - FOETAL GROWTH RESTRICTION [None]
  - PREGNANCY [None]
  - FOETAL DISTRESS SYNDROME [None]
  - MITRAL VALVE DISEASE [None]
  - ULTRASOUND ABDOMEN ABNORMAL [None]
  - OLIGOHYDRAMNIOS [None]
  - VAGINAL HAEMORRHAGE [None]
  - MATERNAL EXPOSURE DURING PREGNANCY [None]
  - CAESAREAN SECTION [None]
  - ANTEPARTUM HAEMORRHAGE [None]
